FAERS Safety Report 10905497 (Version 2)
Quarter: 2015Q2

REPORT INFORMATION
  Report Type: Spontaneous
  Country: US (occurrence: US)
  Receive Date: 20150311
  Receipt Date: 20150401
  Transmission Date: 20150821
  Serious: No
  Sender: FDA-Public Use
  Company Number: US-PFIZER INC-2015086252

PATIENT
  Age: 53 Year
  Sex: Female

DRUGS (9)
  1. CELEBREX [Suspect]
     Active Substance: CELECOXIB
     Dosage: UNK
  2. HUMIRA [Concomitant]
     Active Substance: ADALIMUMAB
     Dosage: 40MG EVERY OTHER WEEK
     Route: 058
     Dates: start: 20131111, end: 20140330
  3. FOLIC ACID. [Concomitant]
     Active Substance: FOLIC ACID
     Dosage: 1 MG, DAILY (1 MG 1 TAB PO DAILY)
     Route: 048
     Dates: start: 20121115
  4. XELJANZ [Concomitant]
     Active Substance: TOFACITINIB CITRATE
     Dosage: 5 MG, 2X/DAY (5MG 1 TAB PO BID)
     Route: 048
     Dates: start: 20150225
  5. METHOTREXATE SODIUM. [Concomitant]
     Active Substance: METHOTREXATE SODIUM
     Dosage: 2.5MG 8 TABS (20MG) WEEKLY IN THE EVENING WITH DINNER
     Route: 048
     Dates: start: 20121115
  6. VITAMIN D3 [Concomitant]
     Active Substance: CHOLECALCIFEROL
     Dosage: CAPSULE 1000IU AT 2 DF DAILY
     Route: 048
     Dates: start: 20121031
  7. MEDROL [Concomitant]
     Active Substance: METHYLPREDNISOLONE
     Dosage: UNK (TOOK AS PER PACKAGE INSTRUCTIONS)
     Route: 048
     Dates: start: 20130122
  8. LAMISIL [Suspect]
     Active Substance: TERBINAFINE HYDROCHLORIDE
     Dosage: UNK
  9. LIDODERM [Concomitant]
     Active Substance: LIDOCAINE
     Dosage: 5% TOPICAL FILM APPLY TOP 12HR ON, 12 HR OFF TO AFFECTED AREA
     Route: 061
     Dates: start: 20130122

REACTIONS (1)
  - Drug hypersensitivity [Unknown]
